FAERS Safety Report 12452997 (Version 1)
Quarter: 2016Q2

REPORT INFORMATION
  Report Type: Spontaneous
  Country: None (occurrence: US)
  Receive Date: 20160609
  Receipt Date: 20160609
  Transmission Date: 20160815
  Serious: Yes (Death, Hospitalization)
  Sender: FDA-Public Use
  Company Number: US-BION-20160219

PATIENT
  Age: 25 Year
  Sex: Female

DRUGS (1)
  1. LOPRAMIDE UNKNOWN [Suspect]
     Active Substance: LOPERAMIDE
     Indication: DRUG WITHDRAWAL SYNDROME
     Route: 048

REACTIONS (16)
  - Acute respiratory failure [Recovered/Resolved]
  - Device capturing issue [None]
  - Cardiotoxicity [None]
  - Abdominal pain [Recovered/Resolved]
  - Vomiting [None]
  - Nausea [Unknown]
  - Long QT syndrome [Recovered/Resolved]
  - Electrocardiogram QRS complex prolonged [Recovered/Resolved]
  - Drug abuse [Fatal]
  - Syncope [None]
  - Shock [None]
  - Bradycardia [None]
  - Ventricular tachycardia [Recovered/Resolved]
  - Product use issue [Not Recovered/Not Resolved]
  - Cardio-respiratory arrest [Fatal]
  - Conduction disorder [None]
